FAERS Safety Report 9788803 (Version 1)
Quarter: 2013Q4

REPORT INFORMATION
  Report Type: Spontaneous
  Country: GB (occurrence: GB)
  Receive Date: 20131230
  Receipt Date: 20131230
  Transmission Date: 20140711
  Serious: Yes (Hospitalization)
  Sender: FDA-Public Use
  Company Number: GB-NOVOPROD-395992

PATIENT
  Age: 34 Year
  Sex: Female

DRUGS (2)
  1. NOVORAPID [Suspect]
     Indication: TYPE 1 DIABETES MELLITUS
     Dosage: CARBOHYDRATE COUNTING
     Route: 065
  2. LANTUS [Concomitant]
     Dosage: 22 U AT MORNING
     Route: 065

REACTIONS (2)
  - Infection [Unknown]
  - Blood glucose increased [Unknown]
